FAERS Safety Report 11113057 (Version 1)
Quarter: 2015Q2

REPORT INFORMATION
  Report Type: Spontaneous
  Country: US (occurrence: None)
  Receive Date: 20150504
  Receipt Date: 20150504
  Transmission Date: 20150821
  Serious: Yes (Other)
  Sender: FDA-Public Use
  Company Number: 1517493

PATIENT
  Sex: Male

DRUGS (2)
  1. AVASTIN [Suspect]
     Active Substance: BEVACIZUMAB
     Indication: AGE-RELATED MACULAR DEGENERATION
     Route: 031
     Dates: start: 20141217, end: 20141217
  2. EYLEA [Suspect]
     Active Substance: AFLIBERCEPT
     Indication: AGE-RELATED MACULAR DEGENERATION
     Dosage: IN RIGHT EYE (2 MG, MONTHLY), INTRAOCULAR
     Route: 031
     Dates: start: 2012, end: 2012

REACTIONS (3)
  - Conjunctival haemorrhage [None]
  - Drug ineffective [None]
  - Injury associated with device [None]

NARRATIVE: CASE EVENT DATE: 20141223
